FAERS Safety Report 23468764 (Version 1)
Quarter: 2024Q1

REPORT INFORMATION
  Report Type: Spontaneous
  Country: PL (occurrence: PL)
  Receive Date: 20240202
  Receipt Date: 20240202
  Transmission Date: 20240410
  Serious: Yes (Death)
  Sender: FDA-Public Use
  Company Number: PL-Merck Healthcare KGaA-2024005773

PATIENT
  Age: 74 Year

DRUGS (1)
  1. AVELUMAB [Suspect]
     Active Substance: AVELUMAB
     Indication: Bladder cancer

REACTIONS (2)
  - Hepatic failure [Fatal]
  - Pancreatitis [Fatal]
